FAERS Safety Report 18217557 (Version 7)
Quarter: 2021Q4

REPORT INFORMATION
  Report Type: Spontaneous
  Country: JP (occurrence: JP)
  Receive Date: 20200901
  Receipt Date: 20211108
  Transmission Date: 20220303
  Serious: Yes (Disabling, Other)
  Sender: FDA-Public Use
  Company Number: NVSJ2020JP007048

PATIENT
  Age: 71 Year
  Sex: Male
  Weight: 68 kg

DRUGS (2)
  1. BEOVU [Suspect]
     Active Substance: BROLUCIZUMAB-DBLL
     Indication: Age-related macular degeneration
     Dosage: 6 MG
     Route: 031
     Dates: start: 20200701, end: 20200701
  2. BEOVU [Suspect]
     Active Substance: BROLUCIZUMAB-DBLL
     Indication: Polypoidal choroidal vasculopathy

REACTIONS (12)
  - Retinal vasculitis [Recovered/Resolved]
  - Vision blurred [Unknown]
  - Visual acuity reduced transiently [Recovered/Resolved]
  - Retinal haemorrhage [Unknown]
  - Optic neuritis [Unknown]
  - Retinal artery occlusion [Recovered/Resolved with Sequelae]
  - Retinal vein occlusion [Recovered/Resolved with Sequelae]
  - Vitreous opacities [Not Recovered/Not Resolved]
  - Anterior chamber inflammation [Not Recovered/Not Resolved]
  - Vitreous floaters [Unknown]
  - Eye inflammation [Unknown]
  - Conjunctival hyperaemia [Not Recovered/Not Resolved]

NARRATIVE: CASE EVENT DATE: 20200712
